FAERS Safety Report 7660211-9 (Version None)
Quarter: 2011Q3

REPORT INFORMATION
  Report Type: 
  Country: None (occurrence: None)
  Receive Date: 20110805
  Receipt Date: 20110801
  Transmission Date: 20111222
  Serious: Yes (Death, Other)
  Sender: FDA-Public Use
  Company Number: PHHY2011US68107

PATIENT
  Sex: Male

DRUGS (5)
  1. ASPIRIN [Concomitant]
  2. GILENYA [Suspect]
     Indication: MULTIPLE SCLEROSIS
     Dosage: 0.5 MG, QD
     Route: 048
     Dates: start: 20110627, end: 20110728
  3. GILENYA [Suspect]
     Dosage: 0.5 MG, UNK
     Route: 048
     Dates: start: 20110726
  4. CIALIS [Concomitant]
  5. LEVITRA [Concomitant]

REACTIONS (15)
  - GASTROENTERITIS VIRAL [None]
  - MALAISE [None]
  - BRADYCARDIA [None]
  - NEUTROPHILIA [None]
  - BLOOD GLUCOSE INCREASED [None]
  - NAUSEA [None]
  - URINARY TRACT INFECTION [None]
  - ARRHYTHMIA [None]
  - PYREXIA [None]
  - GAIT DISTURBANCE [None]
  - ASPARTATE AMINOTRANSFERASE INCREASED [None]
  - MUSCLE SPASMS [None]
  - GASTROENTERITIS [None]
  - SUDDEN DEATH [None]
  - WHITE BLOOD CELL COUNT INCREASED [None]
